FAERS Safety Report 8970022 (Version 1)
Quarter: 2012Q4

REPORT INFORMATION
  Report Type: 
  Country: US (occurrence: US)
  Receive Date: 20121218
  Receipt Date: 20121218
  Transmission Date: 20130627
  Serious: No
  Sender: FDA-Public Use
  Company Number: US-BRISTOL-MYERS SQUIBB COMPANY-16533572

PATIENT
  Age: 73 Year
  Sex: Male

DRUGS (1)
  1. ABILIFY TABS 2 MG [Suspect]
     Dosage: Formualtion-Abilify tab 2mg bottle 1*30 US
     Dates: start: 20120131

REACTIONS (2)
  - Somnolence [Recovered/Resolved]
  - Drug ineffective [Unknown]
